FAERS Safety Report 14702673 (Version 1)
Quarter: 2018Q2

REPORT INFORMATION
  Report Type: Spontaneous
  Country: ES (occurrence: ES)
  Receive Date: 20180402
  Receipt Date: 20180402
  Transmission Date: 20180711
  Serious: Yes (Hospitalization, Other)
  Sender: FDA-Public Use
  Company Number: ES-ZYDUS-019513

PATIENT
  Age: 66 Year
  Sex: Female

DRUGS (10)
  1. VENLAFAXINE/VENLAFAXINE HYDROCHLORIDE [Suspect]
     Active Substance: VENLAFAXINE HYDROCHLORIDE
     Indication: PRODUCT USED FOR UNKNOWN INDICATION
     Route: 065
  2. MIRTAZAPINE. [Interacting]
     Active Substance: MIRTAZAPINE
     Indication: PRODUCT USED FOR UNKNOWN INDICATION
     Route: 065
  3. AMOXICILLIN AND CLAVULANATE POTASSIUM [Interacting]
     Active Substance: AMOXICILLIN\CLAVULANATE POTASSIUM
     Indication: ANTIBIOTIC THERAPY
     Dosage: ANTIBIOTHERAPY CONSISTING OF AMOXICILLIN/CLAVULANIC ACID 875/125 MG AFTER THE INTERVENTION
     Route: 065
  4. CLONAZEPAM. [Concomitant]
     Active Substance: CLONAZEPAM
     Indication: PRODUCT USED FOR UNKNOWN INDICATION
     Route: 065
  5. QUETIAPINE/QUETIAPINE FUMARATE [Suspect]
     Active Substance: QUETIAPINE FUMARATE
     Indication: PRODUCT USED FOR UNKNOWN INDICATION
     Route: 065
  6. LORMETAZEPAM [Concomitant]
     Active Substance: LORMETAZEPAM
     Indication: PRODUCT USED FOR UNKNOWN INDICATION
     Route: 065
  7. IRBESARTAN. [Concomitant]
     Active Substance: IRBESARTAN
     Indication: PRODUCT USED FOR UNKNOWN INDICATION
     Route: 065
  8. CLORAZEPIC ACID [Concomitant]
     Active Substance: CLORAZEPIC ACID
     Indication: PRODUCT USED FOR UNKNOWN INDICATION
     Route: 065
  9. SIMVASTATIN. [Suspect]
     Active Substance: SIMVASTATIN
     Indication: PRODUCT USED FOR UNKNOWN INDICATION
     Route: 065
  10. LANSOPRAZOLE. [Concomitant]
     Active Substance: LANSOPRAZOLE
     Indication: PRODUCT USED FOR UNKNOWN INDICATION
     Route: 065

REACTIONS (14)
  - Fatigue [Recovered/Resolved]
  - Rhabdomyolysis [Recovered/Resolved]
  - Hyperhidrosis [Recovered/Resolved]
  - Seizure [Recovered/Resolved]
  - Renal failure [Recovered/Resolved]
  - Drug interaction [Unknown]
  - Disorientation [Recovered/Resolved]
  - Speech disorder [Recovered/Resolved]
  - Pain [Recovered/Resolved]
  - Hyponatraemia [Recovered/Resolved]
  - Serotonin syndrome [Recovered/Resolved]
  - Urine output decreased [Recovered/Resolved]
  - Social avoidant behaviour [Recovered/Resolved]
  - Muscular weakness [Recovered/Resolved]
